FAERS Safety Report 20489522 (Version 1)
Quarter: 2022Q1

REPORT INFORMATION
  Report Type: Spontaneous
  Country: CO (occurrence: CO)
  Receive Date: 20220218
  Receipt Date: 20220218
  Transmission Date: 20220423
  Serious: Yes (Other)
  Sender: FDA-Public Use
  Company Number: CO-PFIZER INC-202101557473

PATIENT
  Age: 64 Year
  Sex: Male

DRUGS (1)
  1. SUTENT [Suspect]
     Active Substance: SUNITINIB MALATE
     Dosage: 50 MG, CYCLIC (28 DAYS AND RESTING FOR 15 DAYS)
     Route: 048
     Dates: start: 202003, end: 2020

REACTIONS (6)
  - Renal disorder [Unknown]
  - Skin disorder [Unknown]
  - Red blood cell abnormality [Unknown]
  - Dizziness [Unknown]
  - Feeling drunk [Unknown]
  - Amnesia [Unknown]

NARRATIVE: CASE EVENT DATE: 20200101
